FAERS Safety Report 10060807 (Version 2)
Quarter: 2014Q2

REPORT INFORMATION
  Report Type: Report from Study
  Country: US (occurrence: US)
  Receive Date: 20140404
  Receipt Date: 20140509
  Transmission Date: 20141212
  Serious: Yes (Hospitalization, Other)
  Sender: FDA-Public Use
  Company Number: US-ABBVIE-14P-163-1217747-00

PATIENT
  Sex: Female
  Weight: 58.11 kg

DRUGS (6)
  1. HUMIRA [Suspect]
     Indication: PSORIATIC ARTHROPATHY
     Dates: start: 2006, end: 2012
  2. HUMIRA [Suspect]
     Indication: PSORIASIS
  3. HUMIRA [Suspect]
     Indication: PSORIATIC ARTHROPATHY
  4. SYNTHROID [Concomitant]
     Indication: HYPOTHYROIDISM
  5. SYNTHROID [Concomitant]
     Indication: BASEDOW^S DISEASE
  6. BYSTOLIC [Concomitant]
     Indication: HYPERTENSION

REACTIONS (5)
  - Intervertebral disc protrusion [Recovered/Resolved]
  - Cystitis [Recovered/Resolved]
  - Psoriasis [Not Recovered/Not Resolved]
  - Back pain [Recovered/Resolved]
  - Psoriasis [Unknown]
